FAERS Safety Report 9687891 (Version 1)
Quarter: 2013Q4

REPORT INFORMATION
  Report Type: Spontaneous
  Country: IT (occurrence: None)
  Receive Date: 20131112
  Receipt Date: 20131112
  Transmission Date: 20140711
  Serious: Yes (Other)
  Sender: FDA-Public Use
  Company Number: SYM-2013-12512

PATIENT
  Sex: 0

DRUGS (4)
  1. FLUOROURACIL (FLUOROURACIL) (SOLUTION FOR INFUSION) (FLUOROURACIL) [Suspect]
     Indication: BILE DUCT CANCER
     Dosage: 400 MG/M2, 2 IN 1 WK, INTRAVENOUS BOLUS
     Route: 040
  2. OXALIPLATIN (OXALIPLATIN) (SOLUTION FOR INFUSION) (OXALIPLATIN) [Suspect]
     Indication: BILE DUCT CANCER
     Dosage: 85 MG/M2, 2 IN 1 WK, INTRAVENOUS
     Route: 042
  3. FOLINIC ACID [Suspect]
     Indication: BILE DUCT CANCER
     Dosage: 200 MG, 2 IN 1 WK, INTRAVENOUS (NOT OTHERWISE SPECIFIED)
     Route: 042
  4. ANTIEMETICS AND ANTINAUSEANTS (ANTIEMETICS AND ANTINAUSEANTS)? [Concomitant]

REACTIONS (1)
  - Cholangitis [None]
